FAERS Safety Report 4825949-7 (Version None)
Quarter: 2005Q4

REPORT INFORMATION
  Report Type: 
  Country: None (occurrence: None)
  Receive Date: 20051110
  Receipt Date: 20051110
  Transmission Date: 20060501
  Serious: Yes (Hospitalization)
  Sender: FDA-Public Use
  Company Number: None

PATIENT
  Age: 88 Year
  Sex: Male
  Weight: 69.4 kg

DRUGS (3)
  1. LORAZEPAM [Suspect]
     Indication: ANXIETY
     Dosage: 0.5MG Q8HOUR  PRN
     Dates: start: 20051011, end: 20051101
  2. SERTRALINE HCL [Concomitant]
  3. COUMADIN [Concomitant]

REACTIONS (1)
  - FALL [None]
